FAERS Safety Report 10167783 (Version 2)
Quarter: 2014Q2

REPORT INFORMATION
  Report Type: Spontaneous
  Country: IT (occurrence: IT)
  Receive Date: 20140512
  Receipt Date: 20140604
  Transmission Date: 20141212
  Serious: Yes (Other)
  Sender: FDA-Public Use
  Company Number: IT-TEVA-479076ISR

PATIENT
  Age: 78 Year
  Sex: Female
  Weight: 75 kg

DRUGS (7)
  1. CARBOPLATINO TEVA [Suspect]
     Indication: UTERINE CANCER
     Dosage: 300 MILLIGRAM DAILY;
     Route: 042
     Dates: start: 20140210, end: 20140422
  2. CARBOPLATINO TEVA [Suspect]
     Route: 042
     Dates: start: 20140519
  3. ANZATAX [Concomitant]
     Dosage: 220 MILLIGRAM DAILY;
  4. ANZATAX [Concomitant]
     Dates: start: 20140519
  5. GRANISETRON HIKMA [Concomitant]
  6. TRIMETON [Concomitant]
  7. SOLDESAM [Concomitant]

REACTIONS (2)
  - Nasal obstruction [Recovered/Resolved]
  - Feeling hot [Recovered/Resolved]
